FAERS Safety Report 6432034 (Version 2)
Quarter: 2016Q1

REPORT INFORMATION
  Report Type: Spontaneous
  Country: VN (occurrence: VN)
  Receive Date: 20071001
  Receipt Date: 20160201
  Transmission Date: 20160526
  Serious: Yes (Hospitalization, Other)
  Sender: FDA-Public Use
  Company Number: VN-BRISTOL-MYERS SQUIBB COMPANY-13921655

PATIENT
  Age: 30 Year
  Sex: Female

DRUGS (1)
  1. BARACLUDE [Suspect]
     Active Substance: ENTECAVIR
     Indication: CHRONIC HEPATITIS B
     Dosage: .5 MG, QD
     Route: 048
     Dates: start: 200705, end: 20070924

REACTIONS (2)
  - Ectopic pregnancy [Unknown]
  - Hysterectomy [Unknown]
